FAERS Safety Report 13947066 (Version 4)
Quarter: 2019Q1

REPORT INFORMATION
  Report Type: Spontaneous
  Country: US (occurrence: US)
  Receive Date: 20170907
  Receipt Date: 20190130
  Transmission Date: 20190417
  Serious: Yes (Hospitalization, Other)
  Sender: FDA-Public Use
  Company Number: US-DSJP-DSU-2017-135734

PATIENT

DRUGS (1)
  1. BENICAR [Suspect]
     Active Substance: OLMESARTAN MEDOXOMIL
     Indication: HYPERTENSION
     Dosage: 40 MG, QD
     Route: 048
     Dates: start: 20070715, end: 20130123

REACTIONS (5)
  - Diverticulitis [Unknown]
  - Weight decreased [Unknown]
  - Gastrooesophageal reflux disease [Unknown]
  - Diverticulum intestinal [Unknown]
  - Renal failure [Recovered/Resolved]

NARRATIVE: CASE EVENT DATE: 2010
